FAERS Safety Report 6470769-3 (Version None)
Quarter: 2009Q4

REPORT INFORMATION
  Report Type: 
  Country: None (occurrence: None)
  Receive Date: 20091203
  Receipt Date: 20091124
  Transmission Date: 20100525
  Serious: Yes (Hospitalization)
  Sender: FDA-Public Use
  Company Number: B0607311A

PATIENT
  Sex: Female

DRUGS (6)
  1. LANVIS [Suspect]
     Dosage: 60MGM2 PER DAY
     Route: 048
     Dates: start: 20091016
  2. VEPESID [Suspect]
     Dosage: 150MGM2 PER DAY
     Route: 065
     Dates: start: 20091016
  3. ARACYTINE [Suspect]
     Dosage: 30MGM2 PER DAY
     Route: 065
     Dates: start: 20091016
  4. VINCRISTINE [Concomitant]
     Route: 065
     Dates: start: 20090828
  5. DAUNORUBICIN HCL [Concomitant]
     Route: 065
     Dates: start: 20090828
  6. METHOTREXATE [Concomitant]
     Route: 065
     Dates: start: 20090828

REACTIONS (11)
  - ABDOMINAL PAIN [None]
  - ANAEMIA [None]
  - ASCITES [None]
  - ASTHENIA [None]
  - GINGIVAL BLEEDING [None]
  - HEPATOMEGALY [None]
  - NEUTROPENIA [None]
  - OCULAR ICTERUS [None]
  - PLEURAL EFFUSION [None]
  - THROMBOCYTOPENIA [None]
  - VENOOCCLUSIVE DISEASE [None]
